FAERS Safety Report 6006722-3 (Version None)
Quarter: 2008Q4

REPORT INFORMATION
  Report Type: 
  Country: None (occurrence: None)
  Receive Date: 20081215
  Receipt Date: 20081201
  Transmission Date: 20090506
  Serious: Yes (Death, Other)
  Sender: FDA-Public Use
  Company Number: 2008AL012149

PATIENT
  Age: 85 Year
  Sex: Male

DRUGS (4)
  1. CITALOPRAM HYDROBROMIDE [Suspect]
     Indication: OVERDOSE
  2. BENZODIAZEPINE DERIVATIVES [Concomitant]
  3. ........................... [Concomitant]
  4. NOT SPECIFIED [Concomitant]

REACTIONS (5)
  - DRUG TOXICITY [None]
  - GLASGOW COMA SCALE ABNORMAL [None]
  - OVERDOSE [None]
  - RESPIRATORY ARREST [None]
  - TACHYCARDIA [None]
